FAERS Safety Report 9137965 (Version 1)
Quarter: 2013Q1

REPORT INFORMATION
  Report Type: Spontaneous
  Country: AU (occurrence: AU)
  Receive Date: 20130304
  Receipt Date: 20130304
  Transmission Date: 20140127
  Serious: Yes (Hospitalization, Other)
  Sender: FDA-Public Use
  Company Number: PHHY2013AU017235

PATIENT
  Age: 76 Year
  Sex: Female

DRUGS (20)
  1. ACLASTA [Suspect]
     Indication: OSTEOPOROSIS
     Dosage: 5 MG, UNK
     Route: 042
     Dates: start: 20130123
  2. ASPIRIN [Concomitant]
     Dosage: 1 DF, UNK
     Dates: start: 20120328
  3. MOBIC [Concomitant]
     Dosage: 1 DF, WITH MEAL
     Dates: start: 20120523
  4. METFORMIN [Concomitant]
     Dosage: 1 DF, BID
     Dates: start: 20120523
  5. ESCITALOPRAM [Concomitant]
     Dosage: 1 DF IN MORNING
     Dates: start: 20120704
  6. LIPITOR [Concomitant]
     Dosage: 1 DF, UNK
     Dates: start: 20120704
  7. RULIDE [Concomitant]
     Dosage: 1 DF, UNK
     Dates: start: 20120823
  8. PANADEINE FORTE [Concomitant]
     Dosage: 2 DF, EVERY SIX HOURS
     Dates: start: 20121022
  9. TEMAZE [Concomitant]
     Dosage: 1 DF BEFORE BED
     Dates: start: 20121108
  10. NEXUM [Concomitant]
     Dosage: 1 DF BEFORE BED TWICE WEEEKLY
     Dates: start: 20121108
  11. CRESTOR [Concomitant]
     Dosage: 1 DF, UNK
     Dates: start: 20130206
  12. VAGIFEM [Concomitant]
     Dosage: 1 DF, UNK
     Route: 067
     Dates: start: 20120328
  13. TRIMETHOPRIM [Concomitant]
     Dosage: 1 DF, UNK
     Dates: start: 20130215
  14. METOPROLOL TARTRATE [Concomitant]
     Dosage: 0.5 MG IN EVENING
  15. NADINE [Concomitant]
     Dosage: 1 DF BEFORE BED TWICE WEEKLY
     Dates: start: 20120328
  16. BECLOMETASONE [Concomitant]
     Dosage: 1 DF, BID
     Dates: start: 20000511
  17. HYDROCORTISONE [Concomitant]
     Dosage: 1 DF, BID
     Dates: start: 20080227
  18. PANADOL OSTEO [Concomitant]
     Dosage: 1 DF, TID
  19. SERETIDE [Concomitant]
     Dosage: 1 DF, UNK
     Dates: start: 20120229
  20. VENTOLINE [Concomitant]
     Dosage: 2 DF, PRN
     Dates: start: 20111130

REACTIONS (15)
  - Urinary tract infection [Unknown]
  - Flank pain [Unknown]
  - White blood cell count increased [Unknown]
  - Renal failure chronic [Unknown]
  - Renal impairment [Unknown]
  - Blood creatinine increased [Recovering/Resolving]
  - Glomerular filtration rate decreased [Recovering/Resolving]
  - Albumin urine present [Unknown]
  - Urine output decreased [Unknown]
  - Renal failure acute [Unknown]
  - Osteoarthritis [Unknown]
  - Blood pressure decreased [Unknown]
  - Heart rate decreased [Unknown]
  - Blood glucose increased [Unknown]
  - Lethargy [Unknown]
